FAERS Safety Report 9887541 (Version 1)
Quarter: 2014Q1

REPORT INFORMATION
  Report Type: Spontaneous
  Country: GB (occurrence: None)
  Receive Date: 20140206
  Receipt Date: 20140206
  Transmission Date: 20141002
  Serious: Yes (Death, Hospitalization)
  Sender: FDA-Public Use
  Company Number: 2014HINOTH0074

PATIENT
  Age: 32 Year
  Sex: Female

DRUGS (6)
  1. TENOFOVIR [Suspect]
     Indication: ANTIRETROVIRAL THERAPY
     Route: 048
     Dates: start: 20120911, end: 20131027
  2. PREZISTA (DARUNAVIR) [Concomitant]
  3. EMTRIVA (EMTRICITABINE) [Concomitant]
  4. NORVIR (RITONAVIR) [Concomitant]
  5. BARACLUDE (ENTECAVIR) [Concomitant]
  6. EPIVIR (LAMIVUDINE) [Concomitant]

REACTIONS (3)
  - Stillbirth [None]
  - Haemorrhage [None]
  - Maternal exposure during pregnancy [None]
